FAERS Safety Report 15548804 (Version 2)
Quarter: 2019Q1

REPORT INFORMATION
  Report Type: Spontaneous
  Country: US (occurrence: US)
  Receive Date: 20181025
  Receipt Date: 20190117
  Transmission Date: 20190417
  Serious: No
  Sender: FDA-Public Use
  Company Number: US-BIOGEN-2018BI00649169

PATIENT
  Sex: Female

DRUGS (1)
  1. TYSABRI [Suspect]
     Active Substance: NATALIZUMAB
     Indication: MULTIPLE SCLEROSIS
     Route: 042
     Dates: start: 20180201

REACTIONS (6)
  - Eye irritation [Unknown]
  - Arthralgia [Unknown]
  - Depression [Unknown]
  - Feeling abnormal [Unknown]
  - Fatigue [Unknown]
  - Asthenia [Unknown]
